FAERS Safety Report 9721941 (Version 1)
Quarter: 2013Q4

REPORT INFORMATION
  Report Type: Report from Study
  Country: US (occurrence: US)
  Receive Date: 20131202
  Receipt Date: 20131202
  Transmission Date: 20140711
  Serious: Yes (Other)
  Sender: FDA-Public Use
  Company Number: US-ROCHE-1306824

PATIENT
  Sex: Female
  Weight: 15.88 kg

DRUGS (7)
  1. NUTROPIN AQ [Suspect]
     Indication: BODY HEIGHT BELOW NORMAL
     Route: 058
  2. DORNASE ALFA [Suspect]
     Indication: PRODUCT USED FOR UNKNOWN INDICATION
     Dosage: 1 MG/ML NEBULIZER SOLUTION
     Route: 055
  3. ATROVENT [Concomitant]
     Dosage: 500 MCG/2.5 ML NEBULIZER SOLUTION
     Route: 055
  4. CLARITIN [Concomitant]
     Dosage: 5MG/ML
     Route: 048
  5. BACTROBAN [Concomitant]
     Route: 061
  6. PULMICORT [Concomitant]
     Route: 055
  7. SODIUM CHLORIDE [Concomitant]
     Route: 065

REACTIONS (1)
  - Weight gain poor [Unknown]
